FAERS Safety Report 8453606-7 (Version None)
Quarter: 2012Q2

REPORT INFORMATION
  Report Type: 
  Country: None (occurrence: None)
  Receive Date: 20120620
  Receipt Date: 20120608
  Transmission Date: 20120825
  Serious: Yes (Other)
  Sender: FDA-Public Use
  Company Number: JP-MERCK-1206USA02793

PATIENT
  Age: 31 Day
  Sex: Female

DRUGS (1)
  1. PEPCID [Suspect]
     Route: 065
     Dates: start: 20120601

REACTIONS (2)
  - OFF LABEL USE [None]
  - LIVER FUNCTION TEST ABNORMAL [None]
